FAERS Safety Report 9958602 (Version 1)
Quarter: 2014Q1

REPORT INFORMATION
  Report Type: Report from Study
  Country: US (occurrence: US)
  Receive Date: 20140305
  Receipt Date: 20140305
  Transmission Date: 20141002
  Serious: Yes (Hospitalization)
  Sender: FDA-Public Use
  Company Number: US-ROCHE-1348641

PATIENT
  Sex: Female

DRUGS (6)
  1. PERCOCET [Concomitant]
     Dosage: 5-325 MG; 6 HOURS PRN
     Route: 048
  2. AVASTIN [Suspect]
     Indication: OVARIAN CANCER
     Route: 065
     Dates: start: 20110819
  3. HERCEPTIN [Suspect]
     Indication: OVARIAN CANCER
     Dosage: IN 250 ML NSS
     Route: 042
     Dates: start: 20120928, end: 20120928
  4. GEMZAR [Concomitant]
     Route: 065
  5. LIPOIC ACID [Concomitant]
     Route: 048
  6. MILK THISTLE [Concomitant]
     Route: 048

REACTIONS (13)
  - Hydronephrosis [Unknown]
  - Dyspnoea exertional [Unknown]
  - Tachycardia [Unknown]
  - Back pain [Unknown]
  - Myalgia [Unknown]
  - Cough [Recovering/Resolving]
  - Chills [Unknown]
  - Arthralgia [Unknown]
  - Dyspnoea [Recovered/Resolved]
  - Metastases to lung [Unknown]
  - Middle insomnia [Unknown]
  - Back pain [Unknown]
  - Hilar lymphadenopathy [Unknown]
